FAERS Safety Report 11026877 (Version 2)
Quarter: 2015Q3

REPORT INFORMATION
  Report Type: Spontaneous
  Country: US (occurrence: US)
  Receive Date: 20150414
  Receipt Date: 20150901
  Transmission Date: 20151125
  Serious: Yes (Hospitalization)
  Sender: FDA-Public Use
  Company Number: US-BAYER-2015-117738

PATIENT
  Age: 32 Year
  Sex: Female
  Weight: 110.66 kg

DRUGS (4)
  1. MIRENA [Suspect]
     Active Substance: LEVONORGESTREL
     Indication: CONTRACEPTION
     Dosage: 20 MCG/24HR, CONT
     Route: 015
     Dates: start: 20110617, end: 20130515
  2. CELEBREX [Concomitant]
     Active Substance: CELECOXIB
  3. METRONIDAZOLE. [Concomitant]
     Active Substance: METRONIDAZOLE
     Indication: INFECTION
     Dosage: UNK
     Dates: start: 20130409
  4. OFLOXACIN. [Concomitant]
     Active Substance: OFLOXACIN
     Indication: INFECTION

REACTIONS (8)
  - Pain [None]
  - Depression [None]
  - Anxiety [None]
  - Injury [None]
  - Emotional distress [None]
  - Infection [None]
  - Uterine perforation [None]
  - Abdominal pain [None]

NARRATIVE: CASE EVENT DATE: 20130404
